FAERS Safety Report 8885752 (Version 1)
Quarter: 2012Q4

REPORT INFORMATION
  Report Type: 
  Country: US (occurrence: US)
  Receive Date: 20121101
  Receipt Date: 20121101
  Transmission Date: 20130627
  Serious: Yes (Other)
  Sender: FDA-Public Use
  Company Number: PHHY2012US098817

PATIENT
  Sex: Female
  Weight: 53.93 kg

DRUGS (4)
  1. GILENYA [Suspect]
     Indication: MULTIPLE SCLEROSIS
     Dosage: 0.5 mg, QD
     Route: 048
     Dates: start: 20111214, end: 20111214
  2. DETROL [Concomitant]
     Dosage: 1 DF, daily
     Route: 048
  3. DIAMOX [Concomitant]
     Dosage: 250 mg, for one week, then increase dosage
     Route: 048
  4. VITAMIN D3 [Concomitant]
     Dosage: 5000 U, weekly
     Route: 048

REACTIONS (8)
  - JC virus test positive [Unknown]
  - Fracture [Unknown]
  - Fall [Unknown]
  - Gait disturbance [Unknown]
  - Multiple sclerosis relapse [Unknown]
  - Balance disorder [Unknown]
  - Paraesthesia [Unknown]
  - Pruritus [Unknown]
